FAERS Safety Report 9601458 (Version 1)
Quarter: 2013Q4

REPORT INFORMATION
  Report Type: Report from Study
  Country: US (occurrence: US)
  Receive Date: 20131007
  Receipt Date: 20131007
  Transmission Date: 20140711
  Serious: Yes (Other)
  Sender: FDA-Public Use
  Company Number: US-ROCHE-1283801

PATIENT
  Sex: Female
  Weight: 67.37 kg

DRUGS (27)
  1. HERCEPTIN [Suspect]
     Indication: BREAST CANCER FEMALE
     Route: 065
     Dates: start: 20091117
  2. LAPATINIB [Concomitant]
  3. TAMOXIFEN [Concomitant]
  4. ASPIRIN [Concomitant]
  5. TAXOL [Concomitant]
  6. CARBOPLATIN [Concomitant]
  7. ABRAXANE [Concomitant]
  8. VINORELBINE [Concomitant]
  9. HALAVEN [Concomitant]
  10. IXABEPILONE [Concomitant]
  11. CAPECITABINE [Concomitant]
     Route: 065
  12. ALBUTEROL SULFATE [Concomitant]
     Dosage: 5 MG/ML: NON-ORAL TAKE 5 MG
     Route: 065
  13. DURAGESIC [Concomitant]
     Dosage: 100MCG/HR PATCH(ES), TRANSDERMAL TAKE 2 PATCH(ES) TOPICAL Q72H
     Route: 065
  14. ELIDEL [Concomitant]
     Dosage: TAKE 1 TOPICAL APPLICATION
     Route: 061
  15. HYDROCODONE/ACETAMINOPHEN [Concomitant]
     Indication: PAIN
     Dosage: 10MG-325MG TABLET(S) TAKE 1 PO Q6H PRN
     Route: 048
  16. LORTAB [Concomitant]
     Dosage: 7.5-500/15 SOLUTION, ORAL TAKE 5 ML PO Q4H
     Route: 048
  17. MUCINEX [Concomitant]
     Dosage: 50 MG GRANULES IN PACKET TAKE 1 PACKET(S)
     Route: 048
  18. PROMETHAZINE HCL [Concomitant]
     Indication: NAUSEA
     Dosage: TAKE 1 PO Q4H PRN
     Route: 048
  19. PROMETHAZINE HCL [Concomitant]
     Dosage: SUPPOSITORY, RECTAL TAKE 1 SUPP{S) P.R. Q4H PRN
     Route: 048
     Dates: start: 20111110
  20. REGLAN [Concomitant]
     Dosage: 1 PO TID
     Route: 048
  21. REMERON [Concomitant]
     Dosage: TAKE 1 PO QHS
     Route: 048
  22. SANCUSO [Concomitant]
     Dosage: 3.1 MG/24HR PATCH(ES), TRANSDERMAL WEEKLY TAKE 1 PATCH TOPICAL
     Route: 062
  23. TAMOXIFEN CITRATE [Concomitant]
     Dosage: TAKE 1 PO DAILY
     Route: 048
  24. TRAMADOL HCL [Concomitant]
     Dosage: TAKE 1 PO BID PRN
     Route: 048
  25. TYKERB [Concomitant]
     Dosage: TAKE 5 PO DAILY
     Route: 048
  26. ZOFRAN [Concomitant]
     Indication: NAUSEA
     Dosage: TAKE 1 PO Q8H PRN
     Route: 048
  27. ZOVIRAX [Concomitant]
     Dosage: TAKE 1 TOPICAL APPLICATION TOPICAL APPLICATION 5 TIMES DAILY.
     Route: 061

REACTIONS (7)
  - Pancytopenia [Unknown]
  - Disease progression [Unknown]
  - Fatigue [Unknown]
  - Nausea [Unknown]
  - Vomiting [Unknown]
  - Ejection fraction decreased [Unknown]
  - Dehydration [Unknown]
